FAERS Safety Report 6285161-4 (Version None)
Quarter: 2009Q3

REPORT INFORMATION
  Report Type: 
  Country: None (occurrence: None)
  Receive Date: 20090727
  Receipt Date: 20090713
  Transmission Date: 20100115
  Serious: Yes (Hospitalization)
  Sender: FDA-Public Use
  Company Number: PHHY2009GB26517

PATIENT
  Sex: Male

DRUGS (6)
  1. CLOZARIL [Suspect]
     Indication: SCHIZOPHRENIA
     Dosage: UNK
     Route: 048
     Dates: start: 20020813
  2. CLOZARIL [Suspect]
     Dosage: 525 MG/ DAY
     Route: 048
     Dates: start: 20090504
  3. HYOSCINE [Concomitant]
     Indication: SALIVARY HYPERSECRETION
     Dosage: 300 MG
     Route: 048
     Dates: start: 20060410
  4. RISPERIDONE [Concomitant]
     Indication: SCHIZOPHRENIA
     Dosage: 8 MG
     Route: 048
     Dates: start: 20060410
  5. LAMOTRIGINE [Concomitant]
     Indication: SCHIZOPHRENIA
     Dosage: 100 MG
     Route: 048
     Dates: start: 20060410
  6. FLUOXETINE [Concomitant]
     Indication: DEPRESSIVE SYMPTOM
     Dosage: 20 MG
     Route: 048
     Dates: start: 20060410

REACTIONS (3)
  - CELLULITIS [None]
  - NEUTROPHIL COUNT INCREASED [None]
  - WHITE BLOOD CELL COUNT INCREASED [None]
